FAERS Safety Report 6006890-3 (Version None)
Quarter: 2008Q4

REPORT INFORMATION
  Report Type: 
  Country: None (occurrence: None)
  Receive Date: 20081217
  Receipt Date: 20080303
  Transmission Date: 20090506
  Serious: No
  Sender: FDA-Public Use
  Company Number: US-ASTRAZENECA-2007UW26808

PATIENT
  Age: 63 Year
  Sex: Female
  Weight: 66.2 kg

DRUGS (3)
  1. CRESTOR [Suspect]
     Indication: BLOOD CHOLESTEROL INCREASED
     Route: 048
     Dates: start: 20070801, end: 20071101
  2. CRESTOR [Suspect]
     Route: 048
     Dates: start: 20080101
  3. TOPROL-XL [Concomitant]
     Indication: HYPERTENSION

REACTIONS (3)
  - ABDOMINAL DISCOMFORT [None]
  - BLOOD CHOLESTEROL INCREASED [None]
  - FLATULENCE [None]
